FAERS Safety Report 15173275 (Version 45)
Quarter: 2025Q1

REPORT INFORMATION
  Report Type: Spontaneous
  Country: CA (occurrence: CA)
  Receive Date: 20180720
  Receipt Date: 20250221
  Transmission Date: 20250409
  Serious: Yes (Other)
  Sender: BAUSCH AND LOMB
  Company Number: CA-FERRINGPH-2018FE03810

PATIENT
  Age: 53 Year
  Sex: Male

DRUGS (283)
  1. METFORMIN [Suspect]
     Active Substance: METFORMIN HYDROCHLORIDE
     Indication: Product used for unknown indication
     Dosage: 2 EVERY 1 DAY
     Route: 065
  2. METFORMIN [Suspect]
     Active Substance: METFORMIN HYDROCHLORIDE
     Route: 065
  3. METFORMIN [Suspect]
     Active Substance: METFORMIN HYDROCHLORIDE
     Route: 065
  4. METFORMIN [Suspect]
     Active Substance: METFORMIN HYDROCHLORIDE
     Route: 065
  5. METFORMIN [Suspect]
     Active Substance: METFORMIN HYDROCHLORIDE
     Route: 065
  6. METFORMIN [Suspect]
     Active Substance: METFORMIN HYDROCHLORIDE
     Route: 065
  7. METFORMIN [Suspect]
     Active Substance: METFORMIN HYDROCHLORIDE
     Route: 065
  8. METFORMIN [Suspect]
     Active Substance: METFORMIN HYDROCHLORIDE
     Route: 065
  9. METFORMIN [Suspect]
     Active Substance: METFORMIN HYDROCHLORIDE
     Route: 065
  10. BUDESONIDE [Suspect]
     Active Substance: BUDESONIDE
     Indication: Colitis ulcerative
     Dosage: 1 DF, 1 TIME DAILY (PROLONGED-RELEASE TABLET)
     Route: 048
     Dates: start: 20170701
  11. BUDESONIDE [Suspect]
     Active Substance: BUDESONIDE
     Dosage: 8 DOSAGE FORM, Q8WEEKS (PROLONGED-RELEASE TABLET)
     Route: 048
     Dates: start: 200707
  12. BUDESONIDE [Suspect]
     Active Substance: BUDESONIDE
     Route: 048
  13. BUDESONIDE [Suspect]
     Active Substance: BUDESONIDE
     Route: 048
  14. BUDESONIDE [Suspect]
     Active Substance: BUDESONIDE
     Route: 048
  15. BUDESONIDE [Suspect]
     Active Substance: BUDESONIDE
     Route: 048
  16. BUDESONIDE [Suspect]
     Active Substance: BUDESONIDE
     Route: 048
  17. BUDESONIDE [Suspect]
     Active Substance: BUDESONIDE
     Route: 048
  18. BUDESONIDE [Suspect]
     Active Substance: BUDESONIDE
     Route: 048
  19. BUDESONIDE [Suspect]
     Active Substance: BUDESONIDE
     Route: 048
  20. BUDESONIDE [Suspect]
     Active Substance: BUDESONIDE
     Route: 048
  21. BUDESONIDE [Suspect]
     Active Substance: BUDESONIDE
     Dosage: 3 ADMINISTRATIONS
     Route: 048
  22. BUDESONIDE [Suspect]
     Active Substance: BUDESONIDE
     Route: 048
  23. BUDESONIDE [Suspect]
     Active Substance: BUDESONIDE
     Route: 048
  24. BUDESONIDE [Suspect]
     Active Substance: BUDESONIDE
     Route: 048
  25. BUDESONIDE [Suspect]
     Active Substance: BUDESONIDE
     Route: 048
  26. BUDESONIDE [Suspect]
     Active Substance: BUDESONIDE
     Route: 065
  27. BUDESONIDE [Suspect]
     Active Substance: BUDESONIDE
     Route: 048
  28. BUDESONIDE [Suspect]
     Active Substance: BUDESONIDE
     Route: 048
  29. BUDESONIDE [Suspect]
     Active Substance: BUDESONIDE
     Route: 065
  30. BUDESONIDE [Suspect]
     Active Substance: BUDESONIDE
     Route: 065
  31. BUDESONIDE [Suspect]
     Active Substance: BUDESONIDE
     Route: 048
  32. BUDESONIDE [Suspect]
     Active Substance: BUDESONIDE
     Dosage: 2 ADMINISTRATIONS
     Route: 048
  33. BUDESONIDE [Suspect]
     Active Substance: BUDESONIDE
     Route: 065
  34. BUDESONIDE [Suspect]
     Active Substance: BUDESONIDE
     Route: 065
  35. BUDESONIDE [Suspect]
     Active Substance: BUDESONIDE
     Dosage: 2 ADMINISTRATIONS
     Route: 048
  36. BUDESONIDE [Suspect]
     Active Substance: BUDESONIDE
     Route: 048
  37. BUDESONIDE [Suspect]
     Active Substance: BUDESONIDE
     Route: 048
  38. BUDESONIDE [Suspect]
     Active Substance: BUDESONIDE
     Route: 065
  39. BUDESONIDE [Suspect]
     Active Substance: BUDESONIDE
     Route: 065
  40. BUDESONIDE [Suspect]
     Active Substance: BUDESONIDE
     Route: 048
  41. BUDESONIDE [Suspect]
     Active Substance: BUDESONIDE
     Dosage: NOT SPECIFIED
     Route: 048
  42. BUDESONIDE [Suspect]
     Active Substance: BUDESONIDE
     Route: 065
  43. BUDESONIDE [Suspect]
     Active Substance: BUDESONIDE
     Route: 048
  44. BUDESONIDE [Suspect]
     Active Substance: BUDESONIDE
     Route: 065
  45. BUDESONIDE [Suspect]
     Active Substance: BUDESONIDE
     Route: 065
  46. BUDESONIDE [Suspect]
     Active Substance: BUDESONIDE
     Route: 065
  47. BUDESONIDE [Suspect]
     Active Substance: BUDESONIDE
     Route: 065
  48. BUDESONIDE [Suspect]
     Active Substance: BUDESONIDE
     Route: 048
  49. BUDESONIDE [Suspect]
     Active Substance: BUDESONIDE
     Dosage: NOT SPECIFIED
     Route: 048
  50. BUDESONIDE [Suspect]
     Active Substance: BUDESONIDE
     Dosage: NOT SPECIFIED
     Route: 048
  51. BUDESONIDE [Suspect]
     Active Substance: BUDESONIDE
     Dosage: NOT SPECIFIED, 3 ADMINISTRATIONS
     Route: 048
  52. BUDESONIDE [Suspect]
     Active Substance: BUDESONIDE
     Route: 065
  53. BUDESONIDE [Suspect]
     Active Substance: BUDESONIDE
     Dosage: NOT SPECIFIED
     Route: 048
  54. BUDESONIDE [Suspect]
     Active Substance: BUDESONIDE
     Dosage: NOT SPECIFIED
     Route: 065
  55. BUDESONIDE [Suspect]
     Active Substance: BUDESONIDE
     Route: 048
  56. BUDESONIDE [Suspect]
     Active Substance: BUDESONIDE
     Route: 065
  57. BUDESONIDE [Suspect]
     Active Substance: BUDESONIDE
     Dosage: NOT SPECIFIED
     Route: 065
  58. BUDESONIDE [Suspect]
     Active Substance: BUDESONIDE
     Route: 065
  59. BUDESONIDE [Suspect]
     Active Substance: BUDESONIDE
     Route: 065
  60. BUDESONIDE [Suspect]
     Active Substance: BUDESONIDE
     Route: 048
  61. BUDESONIDE [Suspect]
     Active Substance: BUDESONIDE
     Route: 048
  62. BUDESONIDE [Suspect]
     Active Substance: BUDESONIDE
     Route: 065
  63. BUDESONIDE [Suspect]
     Active Substance: BUDESONIDE
     Dosage: NOT SPECIFIED
     Route: 065
  64. BUDESONIDE [Suspect]
     Active Substance: BUDESONIDE
     Dosage: 3 ADMINISTRATIONS
     Route: 048
  65. BUDESONIDE [Suspect]
     Active Substance: BUDESONIDE
     Dosage: 2 ADMINISTRATIONS
     Route: 048
  66. BUDESONIDE [Suspect]
     Active Substance: BUDESONIDE
     Route: 048
  67. BUDESONIDE [Suspect]
     Active Substance: BUDESONIDE
     Route: 065
  68. BUDESONIDE [Suspect]
     Active Substance: BUDESONIDE
     Route: 065
  69. BUDESONIDE [Suspect]
     Active Substance: BUDESONIDE
     Route: 048
  70. BUDESONIDE [Suspect]
     Active Substance: BUDESONIDE
     Route: 048
  71. BUDESONIDE [Suspect]
     Active Substance: BUDESONIDE
     Route: 048
  72. BUDESONIDE [Suspect]
     Active Substance: BUDESONIDE
     Route: 048
  73. BUDESONIDE [Suspect]
     Active Substance: BUDESONIDE
     Route: 048
  74. BUDESONIDE [Suspect]
     Active Substance: BUDESONIDE
     Route: 065
  75. BUDESONIDE [Suspect]
     Active Substance: BUDESONIDE
     Route: 048
  76. BUDESONIDE [Suspect]
     Active Substance: BUDESONIDE
     Route: 048
  77. BUDESONIDE [Suspect]
     Active Substance: BUDESONIDE
     Route: 048
  78. BUDESONIDE [Suspect]
     Active Substance: BUDESONIDE
     Route: 048
  79. BUDESONIDE [Suspect]
     Active Substance: BUDESONIDE
     Route: 048
  80. BUDESONIDE [Suspect]
     Active Substance: BUDESONIDE
     Route: 048
  81. MESALAMINE [Suspect]
     Active Substance: MESALAMINE
     Indication: Colitis ulcerative
     Route: 065
  82. MESALAMINE [Suspect]
     Active Substance: MESALAMINE
     Indication: Product used for unknown indication
     Route: 048
  83. MESALAMINE [Suspect]
     Active Substance: MESALAMINE
     Route: 065
  84. MESALAMINE [Suspect]
     Active Substance: MESALAMINE
     Route: 065
  85. MESALAMINE [Suspect]
     Active Substance: MESALAMINE
     Route: 065
  86. MESALAMINE [Suspect]
     Active Substance: MESALAMINE
     Route: 065
  87. MESALAMINE [Suspect]
     Active Substance: MESALAMINE
     Route: 048
  88. MESALAMINE [Suspect]
     Active Substance: MESALAMINE
     Dosage: 3 ADMINISTRATIONS
     Route: 065
  89. MESALAMINE [Suspect]
     Active Substance: MESALAMINE
     Route: 065
  90. MESALAMINE [Suspect]
     Active Substance: MESALAMINE
     Route: 048
  91. MESALAMINE [Suspect]
     Active Substance: MESALAMINE
     Route: 065
  92. MESALAMINE [Suspect]
     Active Substance: MESALAMINE
     Route: 065
  93. MESALAMINE [Suspect]
     Active Substance: MESALAMINE
     Route: 065
  94. MESALAMINE [Suspect]
     Active Substance: MESALAMINE
     Route: 065
  95. MESALAMINE [Suspect]
     Active Substance: MESALAMINE
     Route: 065
  96. MESALAMINE [Suspect]
     Active Substance: MESALAMINE
     Route: 065
  97. MESALAMINE [Suspect]
     Active Substance: MESALAMINE
     Route: 048
  98. MESALAMINE [Suspect]
     Active Substance: MESALAMINE
     Route: 065
  99. MESALAMINE [Suspect]
     Active Substance: MESALAMINE
     Dosage: NOT SPECIFIED
     Route: 065
  100. MESALAMINE [Suspect]
     Active Substance: MESALAMINE
     Route: 065
  101. MESALAMINE [Suspect]
     Active Substance: MESALAMINE
     Dosage: DOSAGE FORM: NOT SPECIFIED, 2 ADMINISTRATIONS
     Route: 065
  102. MESALAMINE [Suspect]
     Active Substance: MESALAMINE
     Route: 065
  103. MESALAMINE [Suspect]
     Active Substance: MESALAMINE
     Route: 065
  104. MESALAMINE [Suspect]
     Active Substance: MESALAMINE
     Route: 065
  105. MESALAMINE [Suspect]
     Active Substance: MESALAMINE
     Route: 065
  106. MESALAMINE [Suspect]
     Active Substance: MESALAMINE
     Route: 065
  107. MESALAMINE [Suspect]
     Active Substance: MESALAMINE
     Dosage: DOSAGE FORM: NOT SPECIFIED
     Route: 065
  108. MESALAMINE [Suspect]
     Active Substance: MESALAMINE
     Dosage: DOSAGE FORM: NOT SPECIFIED
     Route: 048
  109. MESALAMINE [Suspect]
     Active Substance: MESALAMINE
     Route: 065
  110. MESALAMINE [Suspect]
     Active Substance: MESALAMINE
     Route: 048
  111. MESALAMINE [Suspect]
     Active Substance: MESALAMINE
     Route: 048
  112. MESALAMINE [Suspect]
     Active Substance: MESALAMINE
     Route: 048
  113. MESALAMINE [Suspect]
     Active Substance: MESALAMINE
     Route: 048
  114. MESALAMINE [Suspect]
     Active Substance: MESALAMINE
     Route: 065
  115. MESALAMINE [Suspect]
     Active Substance: MESALAMINE
     Route: 065
  116. MESALAMINE [Suspect]
     Active Substance: MESALAMINE
     Route: 065
  117. MESALAMINE [Suspect]
     Active Substance: MESALAMINE
     Route: 065
  118. MESALAMINE [Suspect]
     Active Substance: MESALAMINE
     Route: 065
  119. MESALAMINE [Suspect]
     Active Substance: MESALAMINE
     Route: 065
  120. MESALAMINE [Suspect]
     Active Substance: MESALAMINE
     Route: 065
  121. MESALAMINE [Suspect]
     Active Substance: MESALAMINE
     Route: 065
  122. MESALAMINE [Suspect]
     Active Substance: MESALAMINE
     Route: 065
  123. MESALAMINE [Suspect]
     Active Substance: MESALAMINE
     Route: 065
  124. MESALAMINE [Suspect]
     Active Substance: MESALAMINE
     Dosage: DOSAGE FORM: NOT SPECIFIED
     Route: 065
  125. MESALAMINE [Suspect]
     Active Substance: MESALAMINE
     Route: 065
  126. MESALAMINE [Suspect]
     Active Substance: MESALAMINE
     Route: 065
  127. MESALAMINE [Suspect]
     Active Substance: MESALAMINE
     Dosage: DOSAGE FORM: NOT SPECIFIED
     Route: 065
  128. MESALAMINE [Suspect]
     Active Substance: MESALAMINE
     Dosage: DOSAGE FORM: NOT SPECIFIED
     Route: 048
  129. MESALAMINE [Suspect]
     Active Substance: MESALAMINE
     Dosage: DOSAGE FORM: NOT SPECIFIED
     Route: 065
  130. MESALAMINE [Suspect]
     Active Substance: MESALAMINE
     Dosage: DOSAGE FORM: NOT SPECIFIED
     Route: 065
  131. MESALAMINE [Suspect]
     Active Substance: MESALAMINE
     Dosage: DOSAGE FORM: NOT SPECIFIED
     Route: 065
  132. MESALAMINE [Suspect]
     Active Substance: MESALAMINE
     Dosage: DOSAGE FORM: NOT SPECIFIED
     Route: 065
  133. MESALAMINE [Suspect]
     Active Substance: MESALAMINE
     Route: 048
  134. MESALAMINE [Suspect]
     Active Substance: MESALAMINE
     Dosage: DOSAGE FORM: NOT SPECIFIED
     Route: 065
  135. MESALAMINE [Suspect]
     Active Substance: MESALAMINE
     Route: 048
  136. MESALAMINE [Suspect]
     Active Substance: MESALAMINE
     Route: 065
  137. MESALAMINE [Suspect]
     Active Substance: MESALAMINE
     Route: 048
  138. MESALAMINE [Suspect]
     Active Substance: MESALAMINE
     Route: 065
  139. MESALAMINE [Suspect]
     Active Substance: MESALAMINE
     Route: 048
  140. MESALAMINE [Suspect]
     Active Substance: MESALAMINE
     Route: 065
  141. MESALAMINE [Suspect]
     Active Substance: MESALAMINE
     Route: 065
  142. MESALAMINE [Suspect]
     Active Substance: MESALAMINE
     Route: 048
  143. MESALAMINE [Suspect]
     Active Substance: MESALAMINE
     Route: 065
  144. MESALAMINE [Suspect]
     Active Substance: MESALAMINE
     Route: 065
  145. MESALAMINE [Suspect]
     Active Substance: MESALAMINE
     Route: 048
  146. MESALAMINE [Suspect]
     Active Substance: MESALAMINE
     Route: 048
  147. MESALAMINE [Suspect]
     Active Substance: MESALAMINE
     Route: 048
  148. MESALAMINE [Suspect]
     Active Substance: MESALAMINE
     Route: 065
  149. MESALAMINE [Suspect]
     Active Substance: MESALAMINE
     Route: 065
  150. MESALAMINE [Suspect]
     Active Substance: MESALAMINE
     Route: 065
  151. MESALAMINE [Suspect]
     Active Substance: MESALAMINE
     Route: 048
  152. MESALAMINE [Suspect]
     Active Substance: MESALAMINE
     Route: 048
  153. MESALAMINE [Suspect]
     Active Substance: MESALAMINE
     Route: 065
  154. MESALAMINE [Suspect]
     Active Substance: MESALAMINE
     Route: 065
  155. MESALAMINE [Suspect]
     Active Substance: MESALAMINE
     Route: 065
  156. MESALAMINE [Suspect]
     Active Substance: MESALAMINE
     Route: 065
  157. HYDROCORTISONE [Suspect]
     Active Substance: HYDROCORTISONE
     Indication: Colitis ulcerative
     Route: 042
  158. HYDROCORTISONE [Suspect]
     Active Substance: HYDROCORTISONE
     Indication: Crohn^s disease
     Route: 048
  159. HYDROCORTISONE [Suspect]
     Active Substance: HYDROCORTISONE
     Route: 048
  160. HYDROCORTISONE [Suspect]
     Active Substance: HYDROCORTISONE
     Route: 048
  161. HYDROCORTISONE [Suspect]
     Active Substance: HYDROCORTISONE
     Route: 048
  162. HYDROCORTISONE [Suspect]
     Active Substance: HYDROCORTISONE
     Route: 048
  163. HYDROCORTISONE [Suspect]
     Active Substance: HYDROCORTISONE
     Route: 048
  164. HYDROCORTISONE [Suspect]
     Active Substance: HYDROCORTISONE
     Route: 065
  165. HYDROCORTISONE [Suspect]
     Active Substance: HYDROCORTISONE
     Route: 065
  166. HYDROCORTISONE [Suspect]
     Active Substance: HYDROCORTISONE
     Route: 048
  167. HYDROCORTISONE [Suspect]
     Active Substance: HYDROCORTISONE
     Route: 065
  168. HYDROCORTISONE [Suspect]
     Active Substance: HYDROCORTISONE
     Route: 065
  169. HYDROCORTISONE [Suspect]
     Active Substance: HYDROCORTISONE
     Route: 065
  170. HYDROCORTISONE [Suspect]
     Active Substance: HYDROCORTISONE
     Route: 048
  171. HYDROCORTISONE [Suspect]
     Active Substance: HYDROCORTISONE
     Route: 065
  172. HYDROCORTISONE [Suspect]
     Active Substance: HYDROCORTISONE
     Dosage: DOSAGE FORM: NOT SPECIFIED
     Route: 065
  173. HYDROCORTISONE [Suspect]
     Active Substance: HYDROCORTISONE
     Dosage: DOSAGE FORM: NOT SPECIFIED
     Route: 048
  174. HYDROCORTISONE [Suspect]
     Active Substance: HYDROCORTISONE
     Dosage: DOSAGE FORM: NOT SPECIFIED
     Route: 048
  175. HYDROCORTISONE [Suspect]
     Active Substance: HYDROCORTISONE
     Dosage: DOSAGE FORM: NOT SPECIFIED
     Route: 048
  176. HYDROCORTISONE [Suspect]
     Active Substance: HYDROCORTISONE
     Route: 065
  177. HYDROCORTISONE [Suspect]
     Active Substance: HYDROCORTISONE
     Dosage: DOSAGE FORM: NOT SPECIFIED
     Route: 065
  178. HYDROCORTISONE [Suspect]
     Active Substance: HYDROCORTISONE
     Dosage: DOSAGE FORM: NOT SPECIFIED
     Route: 048
  179. HYDROCORTISONE [Suspect]
     Active Substance: HYDROCORTISONE
     Dosage: DOSAGE FORM: NOT SPECIFIED
     Route: 048
  180. HYDROCORTISONE [Suspect]
     Active Substance: HYDROCORTISONE
     Route: 065
  181. HYDROCORTISONE [Suspect]
     Active Substance: HYDROCORTISONE
     Route: 048
  182. HYDROCORTISONE [Suspect]
     Active Substance: HYDROCORTISONE
     Route: 048
  183. HYDROCORTISONE [Suspect]
     Active Substance: HYDROCORTISONE
     Route: 065
  184. HYDROCORTISONE [Suspect]
     Active Substance: HYDROCORTISONE
     Route: 065
  185. HYDROCORTISONE [Suspect]
     Active Substance: HYDROCORTISONE
     Dosage: THERAPY DURATION: 1 DAY
     Route: 048
  186. HYDROCORTISONE [Suspect]
     Active Substance: HYDROCORTISONE
     Dosage: THERAPY DURATION: 1 DAY
     Route: 048
  187. HYDROCORTISONE [Suspect]
     Active Substance: HYDROCORTISONE
     Dosage: THERAPY DURATION: 1 DAY
     Route: 048
  188. HYDROCORTISONE [Suspect]
     Active Substance: HYDROCORTISONE
     Dosage: THERAPY DURATION: 1 DAY
     Route: 065
  189. HYDROCORTISONE [Suspect]
     Active Substance: HYDROCORTISONE
     Route: 065
  190. HYDROCORTISONE [Suspect]
     Active Substance: HYDROCORTISONE
     Dosage: THERAPY DURATION: 1 DAY
     Route: 065
  191. HYDROCORTISONE [Suspect]
     Active Substance: HYDROCORTISONE
     Route: 065
  192. HYDROCORTISONE [Suspect]
     Active Substance: HYDROCORTISONE
     Dosage: THERAPY DURATION: 1 DAY
     Route: 048
  193. HYDROCORTISONE [Suspect]
     Active Substance: HYDROCORTISONE
     Dosage: THERAPY DURATION: 1 DAY
     Route: 048
  194. HYDROCORTISONE [Suspect]
     Active Substance: HYDROCORTISONE
     Dosage: THERAPY DURATION: 1 DAY
     Route: 048
  195. HYDROCORTISONE [Suspect]
     Active Substance: HYDROCORTISONE
     Dosage: THERAPY DURATION: 1 DAY, DOSAGE FORM: NOT SPECIFIED
     Route: 048
  196. HYDROCORTISONE [Suspect]
     Active Substance: HYDROCORTISONE
     Dosage: THERAPY DURATION: 1 DAY
     Route: 065
  197. HYDROCORTISONE [Suspect]
     Active Substance: HYDROCORTISONE
     Route: 048
  198. HYDROCORTISONE [Suspect]
     Active Substance: HYDROCORTISONE
     Route: 065
  199. HYDROCORTISONE [Suspect]
     Active Substance: HYDROCORTISONE
     Route: 065
  200. HYDROCORTISONE [Suspect]
     Active Substance: HYDROCORTISONE
     Route: 048
  201. HYDROCORTISONE [Suspect]
     Active Substance: HYDROCORTISONE
     Route: 048
  202. HYDROCORTISONE [Suspect]
     Active Substance: HYDROCORTISONE
     Route: 048
  203. HYDROCORTISONE [Suspect]
     Active Substance: HYDROCORTISONE
     Route: 065
  204. HYDROCORTISONE [Suspect]
     Active Substance: HYDROCORTISONE
     Indication: Colitis ulcerative
     Route: 065
     Dates: start: 201807
  205. HYDROCORTISONE [Suspect]
     Active Substance: HYDROCORTISONE
     Indication: Crohn^s disease
     Dosage: 1 DOSAGE FORM, 1X/DAY QD
     Route: 048
  206. HYDROCORTISONE [Suspect]
     Active Substance: HYDROCORTISONE
     Dosage: 8 DOSAGE FORM, Q8 WEEK
     Route: 065
     Dates: start: 201707
  207. HYDROCORTISONE [Suspect]
     Active Substance: HYDROCORTISONE
     Route: 065
  208. HYDROCORTISONE [Suspect]
     Active Substance: HYDROCORTISONE
     Route: 048
  209. HYDROCORTISONE [Suspect]
     Active Substance: HYDROCORTISONE
     Route: 048
  210. HYDROCORTISONE [Suspect]
     Active Substance: HYDROCORTISONE
     Route: 048
  211. HYDROCORTISONE [Suspect]
     Active Substance: HYDROCORTISONE
     Route: 048
  212. HYDROCORTISONE [Suspect]
     Active Substance: HYDROCORTISONE
     Route: 048
  213. HYDROCORTISONE [Suspect]
     Active Substance: HYDROCORTISONE
     Route: 065
  214. HYDROCORTISONE [Suspect]
     Active Substance: HYDROCORTISONE
     Route: 065
  215. HYDROCORTISONE [Suspect]
     Active Substance: HYDROCORTISONE
     Route: 065
  216. BUDESONIDE [Suspect]
     Active Substance: BUDESONIDE
     Indication: Colitis ulcerative
     Route: 065
  217. HYDROCORTISONE ACETATE [Suspect]
     Active Substance: HYDROCORTISONE ACETATE
     Indication: Crohn^s disease
     Route: 065
  218. HYDROCORTISONE ACETATE [Suspect]
     Active Substance: HYDROCORTISONE ACETATE
     Indication: Colitis ulcerative
     Route: 048
  219. HYDROCORTISONE ACETATE [Suspect]
     Active Substance: HYDROCORTISONE ACETATE
     Indication: Deep vein thrombosis
     Route: 048
  220. HYDROCORTISONE ACETATE [Suspect]
     Active Substance: HYDROCORTISONE ACETATE
     Route: 048
  221. HYDROCORTISONE ACETATE [Suspect]
     Active Substance: HYDROCORTISONE ACETATE
     Route: 065
  222. HYDROCORTISONE ACETATE [Suspect]
     Active Substance: HYDROCORTISONE ACETATE
     Route: 048
  223. HYDROCORTISONE ACETATE [Suspect]
     Active Substance: HYDROCORTISONE ACETATE
     Route: 065
  224. HYDROCORTISONE ACETATE [Suspect]
     Active Substance: HYDROCORTISONE ACETATE
     Route: 065
  225. HYDROCORTISONE ACETATE [Suspect]
     Active Substance: HYDROCORTISONE ACETATE
     Route: 048
  226. HYDROCORTISONE ACETATE [Suspect]
     Active Substance: HYDROCORTISONE ACETATE
     Route: 065
  227. HYDROCORTISONE ACETATE [Suspect]
     Active Substance: HYDROCORTISONE ACETATE
     Route: 048
  228. HYDROCORTISONE ACETATE [Suspect]
     Active Substance: HYDROCORTISONE ACETATE
     Route: 048
  229. HYDROCORTISONE ACETATE [Suspect]
     Active Substance: HYDROCORTISONE ACETATE
     Dosage: THERAPY DURATION: 11 YEARS
     Route: 065
  230. HYDROCORTISONE ACETATE [Suspect]
     Active Substance: HYDROCORTISONE ACETATE
     Route: 065
  231. HYDROCORTISONE ACETATE [Suspect]
     Active Substance: HYDROCORTISONE ACETATE
     Route: 048
  232. HYDROCORTISONE ACETATE [Suspect]
     Active Substance: HYDROCORTISONE ACETATE
     Indication: Crohn^s disease
     Route: 065
  233. HYDROCORTISONE ACETATE [Suspect]
     Active Substance: HYDROCORTISONE ACETATE
     Indication: Colitis ulcerative
     Route: 065
  234. HYDROCORTISONE ACETATE [Suspect]
     Active Substance: HYDROCORTISONE ACETATE
     Indication: Deep vein thrombosis
     Route: 065
  235. CORTISONE [Suspect]
     Active Substance: CORTISONE
     Indication: Crohn^s disease
     Route: 065
  236. CORTISONE [Suspect]
     Active Substance: CORTISONE
     Indication: Colitis ulcerative
     Route: 048
  237. CORTISONE [Suspect]
     Active Substance: CORTISONE
     Route: 042
  238. CORTISONE [Suspect]
     Active Substance: CORTISONE
     Route: 048
  239. CORTISONE [Suspect]
     Active Substance: CORTISONE
     Route: 048
  240. CORTISONE [Suspect]
     Active Substance: CORTISONE
     Route: 048
  241. CORTISONE [Suspect]
     Active Substance: CORTISONE
     Dosage: DOSAGE FORM: NOT SPECIFIED
     Route: 048
  242. CORTISONE [Suspect]
     Active Substance: CORTISONE
     Route: 048
  243. CORTISONE [Suspect]
     Active Substance: CORTISONE
     Route: 065
  244. CORTISONE [Suspect]
     Active Substance: CORTISONE
     Dosage: DOSAGE FORM: NOT SPECIFIED
     Route: 048
  245. CORTISONE [Suspect]
     Active Substance: CORTISONE
     Dosage: DOSAGE FORM: NOT SPECIFIED
     Route: 048
  246. CORTISONE [Suspect]
     Active Substance: CORTISONE
     Dosage: DOSAGE FORM: NOT SPECIFIED
     Route: 065
  247. CORTISONE [Suspect]
     Active Substance: CORTISONE
     Dosage: DOSAGE FORM: NOT SPECIFIED
     Route: 048
  248. CORTISONE [Suspect]
     Active Substance: CORTISONE
     Dosage: DOSAGE FORM: NOT SPECIFIED
     Route: 048
  249. CORTISONE [Suspect]
     Active Substance: CORTISONE
     Dosage: DOSAGE FORM: NOT SPECIFIED
     Route: 065
  250. CORTISONE [Suspect]
     Active Substance: CORTISONE
     Dosage: DOSAGE FORM: NOT SPECIFIED
     Route: 065
  251. CORTISONE [Suspect]
     Active Substance: CORTISONE
     Dosage: DOSAGE FORM: NOT SPECIFIED
     Route: 065
  252. CORTISONE [Suspect]
     Active Substance: CORTISONE
     Dosage: DOSAGE FORM: NOT SPECIFIED
     Route: 048
  253. CORTISONE [Suspect]
     Active Substance: CORTISONE
     Route: 065
  254. CORTISONE [Suspect]
     Active Substance: CORTISONE
     Dosage: DOSAGE FORM: NOT SPECIFIED
     Route: 048
  255. CORTISONE [Suspect]
     Active Substance: CORTISONE
     Route: 048
  256. CORTISONE [Suspect]
     Active Substance: CORTISONE
     Route: 048
  257. DESOXIMETASONE [Suspect]
     Active Substance: DESOXIMETASONE
     Indication: Crohn^s disease
     Route: 048
  258. DESOXIMETASONE [Suspect]
     Active Substance: DESOXIMETASONE
     Route: 048
  259. DESOXIMETASONE [Suspect]
     Active Substance: DESOXIMETASONE
     Route: 048
  260. DESOXIMETASONE [Suspect]
     Active Substance: DESOXIMETASONE
     Route: 048
  261. DESOXIMETASONE [Suspect]
     Active Substance: DESOXIMETASONE
     Dosage: NOT SPECIFIED
     Route: 065
  262. DESOXIMETASONE [Suspect]
     Active Substance: DESOXIMETASONE
     Dosage: NOT SPECIFIED
     Route: 065
  263. DESOXIMETASONE [Suspect]
     Active Substance: DESOXIMETASONE
     Dosage: NOT SPECIFIED
     Route: 065
  264. DESOXIMETASONE [Suspect]
     Active Substance: DESOXIMETASONE
     Route: 065
  265. DESOXIMETASONE [Suspect]
     Active Substance: DESOXIMETASONE
     Dosage: NOT SPECIFIED
     Route: 065
  266. DESOXIMETASONE [Suspect]
     Active Substance: DESOXIMETASONE
     Dosage: NOT SPECIFIED
     Route: 048
  267. DESOXIMETASONE [Suspect]
     Active Substance: DESOXIMETASONE
     Route: 065
  268. DESOXIMETASONE [Suspect]
     Active Substance: DESOXIMETASONE
     Route: 048
  269. DESOXIMETASONE [Suspect]
     Active Substance: DESOXIMETASONE
     Route: 048
  270. DESOXIMETASONE [Suspect]
     Active Substance: DESOXIMETASONE
     Route: 065
  271. DESOXIMETASONE [Suspect]
     Active Substance: DESOXIMETASONE
     Route: 065
  272. DESOXIMETASONE [Suspect]
     Active Substance: DESOXIMETASONE
     Route: 065
  273. DESOXIMETASONE [Suspect]
     Active Substance: DESOXIMETASONE
     Route: 048
  274. DESOXIMETASONE [Suspect]
     Active Substance: DESOXIMETASONE
     Route: 048
  275. DESOXIMETASONE [Suspect]
     Active Substance: DESOXIMETASONE
     Route: 048
  276. DESOXIMETASONE [Suspect]
     Active Substance: DESOXIMETASONE
     Route: 065
  277. DESOXIMETASONE [Suspect]
     Active Substance: DESOXIMETASONE
     Route: 065
  278. DESOXIMETASONE [Suspect]
     Active Substance: DESOXIMETASONE
     Route: 048
  279. DESOXIMETASONE [Suspect]
     Active Substance: DESOXIMETASONE
     Route: 048
  280. DESOXIMETASONE [Suspect]
     Active Substance: DESOXIMETASONE
     Route: 048
  281. EPINEPHRINE [Suspect]
     Active Substance: EPINEPHRINE
     Indication: Product used for unknown indication
     Route: 065
  282. EPINEPHRINE [Suspect]
     Active Substance: EPINEPHRINE
     Route: 065
  283. EPINEPHRINE [Suspect]
     Active Substance: EPINEPHRINE
     Route: 065

REACTIONS (53)
  - Bronchiectasis [Not Recovered/Not Resolved]
  - Weight decreased [Not Recovered/Not Resolved]
  - Impaired quality of life [Not Recovered/Not Resolved]
  - Deep vein thrombosis [Not Recovered/Not Resolved]
  - Colitis ulcerative [Not Recovered/Not Resolved]
  - Loss of personal independence in daily activities [Not Recovered/Not Resolved]
  - Condition aggravated [Not Recovered/Not Resolved]
  - Impaired work ability [Not Recovered/Not Resolved]
  - Steroid dependence [Not Recovered/Not Resolved]
  - Stress [Not Recovered/Not Resolved]
  - Haematochezia [Not Recovered/Not Resolved]
  - Rectal haemorrhage [Not Recovered/Not Resolved]
  - Arthritis [Not Recovered/Not Resolved]
  - Burns second degree [Not Recovered/Not Resolved]
  - COVID-19 [Not Recovered/Not Resolved]
  - Cardiac murmur [Not Recovered/Not Resolved]
  - Catarrh [Not Recovered/Not Resolved]
  - Cerebrovascular accident [Not Recovered/Not Resolved]
  - Confusional state [Not Recovered/Not Resolved]
  - Depression [Not Recovered/Not Resolved]
  - Dysgeusia [Not Recovered/Not Resolved]
  - Eczema [Not Recovered/Not Resolved]
  - Gingival pain [Not Recovered/Not Resolved]
  - Headache [Not Recovered/Not Resolved]
  - Hypopnoea [Not Recovered/Not Resolved]
  - Nightmare [Not Recovered/Not Resolved]
  - Pain [Not Recovered/Not Resolved]
  - Pain in extremity [Not Recovered/Not Resolved]
  - Palpitations [Not Recovered/Not Resolved]
  - Parosmia [Not Recovered/Not Resolved]
  - Pulmonary embolism [Not Recovered/Not Resolved]
  - Pyrexia [Not Recovered/Not Resolved]
  - Rhinitis [Not Recovered/Not Resolved]
  - Somnolence [Not Recovered/Not Resolved]
  - Swollen tongue [Not Recovered/Not Resolved]
  - Systemic lupus erythematosus [Not Recovered/Not Resolved]
  - Tinnitus [Not Recovered/Not Resolved]
  - Tubulointerstitial nephritis [Not Recovered/Not Resolved]
  - Vertigo [Not Recovered/Not Resolved]
  - Migraine [Not Recovered/Not Resolved]
  - Rash [Not Recovered/Not Resolved]
  - Fatigue [Not Recovered/Not Resolved]
  - Abdominal discomfort [Not Recovered/Not Resolved]
  - Frequent bowel movements [Not Recovered/Not Resolved]
  - Drug ineffective [Not Recovered/Not Resolved]
  - Adverse drug reaction [Not Recovered/Not Resolved]
  - Alcohol poisoning [Not Recovered/Not Resolved]
  - Accidental overdose [Not Recovered/Not Resolved]
  - Medication error [Not Recovered/Not Resolved]
  - Intentional product use issue [Not Recovered/Not Resolved]
  - Off label use [Not Recovered/Not Resolved]
  - Inappropriate schedule of product administration [Not Recovered/Not Resolved]
  - Product use in unapproved indication [Not Recovered/Not Resolved]

NARRATIVE: CASE EVENT DATE: 20080101
